FAERS Safety Report 9002341 (Version 2)
Quarter: 2013Q1

REPORT INFORMATION
  Report Type: Spontaneous
  Country: DZ (occurrence: DZ)
  Receive Date: 20130107
  Receipt Date: 20130207
  Transmission Date: 20140127
  Serious: Yes (Other)
  Sender: FDA-Public Use
  Company Number: DZ-PFIZER INC-2013003382

PATIENT
  Age: 58 Year
  Sex: Female

DRUGS (6)
  1. LYRICA [Suspect]
     Indication: NEURALGIA
     Dosage: 50 MG, 3X/DAY
     Dates: start: 20121002, end: 20121115
  2. LYRICA [Suspect]
     Indication: DIABETIC NEPHROPATHY
  3. GLUCOPHAGE [Concomitant]
     Dosage: 850 MG, 3X/DAY
  4. ASPEGIC [Concomitant]
     Dosage: 100 MG, UNK
  5. GLIMEPIRIDE [Concomitant]
     Dosage: 80 MG, UNK
  6. TRIATEC [Concomitant]
     Dosage: 5 MG, UNK

REACTIONS (1)
  - Hyperglycaemia [Recovered/Resolved]
